FAERS Safety Report 5731332-2 (Version None)
Quarter: 2008Q2

REPORT INFORMATION
  Report Type: 
  Country: None (occurrence: None)
  Receive Date: 20080506
  Receipt Date: 20080423
  Transmission Date: 20081010
  Serious: Yes (Hospitalization)
  Sender: FDA-Public Use
  Company Number: US-JNJFOC-20080401821

PATIENT
  Age: 71 Year
  Sex: Male

DRUGS (11)
  1. DECITABINE (DECITABINE) LYOPHILIZED POWDER [Suspect]
     Indication: MYELODYSPLASTIC SYNDROME
     Dosage: 20 MG/M2, INTRAVENOUS
     Route: 042
     Dates: start: 20080321, end: 20080324
  2. VALPROIC ACID [Suspect]
     Indication: MYELODYSPLASTIC SYNDROME
     Dosage: 1250 MG, IN 1 DAY, ORAL
     Route: 048
     Dates: start: 20080321, end: 20080327
  3. NEXIUM (ESOMEPRAZOLE) UNSPECIFIED [Concomitant]
  4. SYNTHROID (LEVOTHYROXINE SODIUM) UNSPECIFIED [Concomitant]
  5. VYTORIN (CHOLESTEROL- AND TRIGLYCERIDE REDUCERS) [Concomitant]
  6. DIFLUCAN (FLUCONAZOLE) UNSPECIFIED [Concomitant]
  7. DIGITEX (DIGOXIN) UNSPECIFIED [Concomitant]
  8. ZOFRAN (ONDANSETRON HYDROCHLORIDE) UNSPECIFIED [Concomitant]
  9. AMBIEN (ZOLPIDEM TARTRATE) UNSPECIFIED [Concomitant]
  10. VALTREX (VALACICLOVIR HYDROCHLORIDE) UNSPECIFIED [Concomitant]
  11. LEVAQUIN [Concomitant]

REACTIONS (7)
  - CONFUSIONAL STATE [None]
  - DEPRESSED LEVEL OF CONSCIOUSNESS [None]
  - DISORIENTATION [None]
  - DRUG LEVEL ABOVE THERAPEUTIC [None]
  - MENTAL STATUS CHANGES [None]
  - SEDATION [None]
  - SOMNOLENCE [None]
